FAERS Safety Report 5089868-6 (Version None)
Quarter: 2006Q3

REPORT INFORMATION
  Report Type: 
  Country: None (occurrence: None)
  Receive Date: 20060727
  Receipt Date: 20060515
  Transmission Date: 20061208
  Serious: Yes (Other)
  Sender: FDA-Public Use
  Company Number: 2006065363

PATIENT
  Age: 53 Year
  Sex: Female
  Weight: 58.9676 kg

DRUGS (6)
  1. LYRICA [Suspect]
     Indication: MIGRAINE
     Dosage: 75 MG(75 MG 1 IN 1 D) UNKNOWN
     Route: 065
     Dates: start: 20060501
  2. PROZAC [Concomitant]
  3. LITHIUM (LITHIUM ) [Concomitant]
  4. NEURONTIN [Concomitant]
  5. ALL OTHER THERAPEUTIC PRODUCTS (ALL OTHER THERAPEUTIC PRODUCTS) [Concomitant]
  6. PROTONIX [Concomitant]

REACTIONS (7)
  - ABDOMINAL DISTENSION [None]
  - ABDOMINAL PAIN [None]
  - DIZZINESS [None]
  - FEELING ABNORMAL [None]
  - FLATULENCE [None]
  - GASTROOESOPHAGEAL REFLUX DISEASE [None]
  - NIGHTMARE [None]
